FAERS Safety Report 9215628 (Version 2)
Quarter: 2013Q2

REPORT INFORMATION
  Report Type: Spontaneous
  Country: IT (occurrence: IT)
  Receive Date: 20130408
  Receipt Date: 20130426
  Transmission Date: 20140414
  Serious: Yes (Death, Hospitalization, Other)
  Sender: FDA-Public Use
  Company Number: IT-PFIZER INC-2013101426

PATIENT
  Age: 71 Year
  Sex: Male

DRUGS (4)
  1. CISPLATINO TEVA [Suspect]
     Indication: SMALL CELL LUNG CANCER
     Dosage: 39.61 MG, 1X/DAY
     Route: 042
     Dates: start: 20121024, end: 20121026
  2. ETOPOSIDE TEVA [Suspect]
     Indication: SMALL CELL LUNG CANCER
     Dosage: 158.5 MG, 1X/DAY
     Route: 042
     Dates: start: 20121024, end: 20121026
  3. PAROXETINA [Concomitant]
     Dosage: 20 MG, 1X/DAY
     Dates: start: 201202
  4. DESAMETASONE FOSFATO HOSPIRA [Concomitant]
     Indication: SMALL CELL LUNG CANCER
     Dosage: UNK
     Dates: start: 20121024, end: 20121026

REACTIONS (3)
  - Septic shock [Fatal]
  - Pneumonia [Not Recovered/Not Resolved]
  - Pancytopenia [Not Recovered/Not Resolved]
